FAERS Safety Report 9885763 (Version 1)
Quarter: 2014Q1

REPORT INFORMATION
  Report Type: Spontaneous
  Country: US (occurrence: US)
  Receive Date: 20140210
  Receipt Date: 20140210
  Transmission Date: 20141002
  Serious: Yes (Other)
  Sender: FDA-Public Use
  Company Number: US-ALKERMES INC.-ALK-2014-002494

PATIENT
  Sex: 0

DRUGS (1)
  1. VIVITROL [Suspect]
     Indication: ALCOHOLISM
     Dosage: 380 MG, UNK
     Route: 030
     Dates: start: 20131221, end: 20131221

REACTIONS (3)
  - Injection site abscess [Not Recovered/Not Resolved]
  - Drug administration error [Not Recovered/Not Resolved]
  - Injection site reaction [Not Recovered/Not Resolved]
